FAERS Safety Report 8439705-4 (Version None)
Quarter: 2012Q2

REPORT INFORMATION
  Report Type: 
  Country: None (occurrence: None)
  Receive Date: 20120615
  Receipt Date: 20120606
  Transmission Date: 20120825
  Serious: Yes (Hospitalization, Other)
  Sender: FDA-Public Use
  Company Number: US-SANOFI-AVENTIS-2012SA040978

PATIENT
  Sex: Male

DRUGS (4)
  1. LEUCOVORIN CALCIUM [Suspect]
  2. ELOXATIN [Suspect]
     Route: 041
  3. FLUOROURACIL [Suspect]
  4. ELOXATIN [Suspect]
     Route: 041
     Dates: start: 20120101, end: 20120101

REACTIONS (4)
  - LIVER DISORDER [None]
  - PERIPHERAL SENSORY NEUROPATHY [None]
  - HYPERTENSION [None]
  - CHEST DISCOMFORT [None]
